FAERS Safety Report 18686962 (Version 1)
Quarter: 2020Q4

REPORT INFORMATION
  Report Type: Spontaneous
  Country: CN (occurrence: CN)
  Receive Date: 20201230
  Receipt Date: 20201230
  Transmission Date: 20210114
  Serious: Yes (Other)
  Sender: FDA-Public Use
  Company Number: CN-SA-2020SA367381

PATIENT

DRUGS (1)
  1. CLEXANE [Suspect]
     Active Substance: ENOXAPARIN SODIUM
     Indication: THROMBOSIS PROPHYLAXIS
     Dosage: 4000 IU, QD
     Route: 058
     Dates: start: 20201202, end: 20201206

REACTIONS (1)
  - Hepatic function abnormal [Recovered/Resolved]

NARRATIVE: CASE EVENT DATE: 20201205
